FAERS Safety Report 21038460 (Version 1)
Quarter: 2022Q3

REPORT INFORMATION
  Report Type: Spontaneous
  Country: US (occurrence: None)
  Receive Date: 20220704
  Receipt Date: 20220704
  Transmission Date: 20221026
  Serious: No
  Sender: FDA-Public Use
  Company Number: US-ALM-HQ-US-2022-0984

PATIENT
  Sex: Male

DRUGS (1)
  1. KLISYRI [Suspect]
     Active Substance: TIRBANIBULIN
     Indication: Actinic keratosis
     Dosage: 1 PACKET TO PRIMARILY FACE DAILY AT NIGHT FOR 5 DAYS
     Route: 061
     Dates: start: 20220513, end: 20220518

REACTIONS (1)
  - Application site pain [Recovered/Resolved]
